FAERS Safety Report 10511934 (Version 1)
Quarter: 2014Q4

REPORT INFORMATION
  Report Type: Spontaneous
  Country: US (occurrence: US)
  Receive Date: 20141010
  Receipt Date: 20141010
  Transmission Date: 20150528
  Serious: Yes (Other)
  Sender: FDA-Public Use
  Company Number: US-ABBVIE-14P-163-1290877-00

PATIENT
  Age: 61 Year
  Sex: Male

DRUGS (2)
  1. LUPRON DEPOT [Suspect]
     Active Substance: LEUPROLIDE ACETATE
     Indication: PROSTATIC SPECIFIC ANTIGEN INCREASED
     Route: 065
  2. CASODEX [Concomitant]
     Active Substance: BICALUTAMIDE
     Indication: PRODUCT USED FOR UNKNOWN INDICATION

REACTIONS (9)
  - Deafness [Recovering/Resolving]
  - Arthritis [Unknown]
  - Hot flush [Recovering/Resolving]
  - Gait disturbance [Unknown]
  - Alopecia [Unknown]
  - Weight increased [Unknown]
  - Loss of libido [Unknown]
  - Tendon disorder [Recovering/Resolving]
  - Breast enlargement [Recovered/Resolved]
